FAERS Safety Report 25166853 (Version 1)
Quarter: 2025Q2

REPORT INFORMATION
  Report Type: Spontaneous
  Country: JP (occurrence: JP)
  Receive Date: 20250407
  Receipt Date: 20250407
  Transmission Date: 20250717
  Serious: Yes (Life-Threatening, Hospitalization, Other)
  Sender: PFIZER
  Company Number: JP-PFIZER INC-PV202500038900

PATIENT
  Age: 69 Year
  Sex: Male

DRUGS (8)
  1. METHOTREXATE SODIUM [Suspect]
     Active Substance: METHOTREXATE SODIUM
     Indication: Mantle cell lymphoma recurrent
  2. METHOTREXATE SODIUM [Suspect]
     Active Substance: METHOTREXATE SODIUM
  3. METHOTREXATE SODIUM [Suspect]
     Active Substance: METHOTREXATE SODIUM
  4. CYTARABINE [Suspect]
     Active Substance: CYTARABINE
     Indication: Mantle cell lymphoma recurrent
  5. CYTARABINE [Suspect]
     Active Substance: CYTARABINE
  6. CYTARABINE [Suspect]
     Active Substance: CYTARABINE
  7. ELOBIXIBAT [Suspect]
     Active Substance: ELOBIXIBAT
  8. LUBIPROSTONE [Concomitant]
     Active Substance: LUBIPROSTONE

REACTIONS (2)
  - Acute kidney injury [Recovering/Resolving]
  - Drug level increased [Recovering/Resolving]
